APPROVED DRUG PRODUCT: ALLOPURINOL
Active Ingredient: ALLOPURINOL
Strength: 100MG
Dosage Form/Route: TABLET;ORAL
Application: N018241 | Product #001
Applicant: WATSON LABORATORIES INC
Approved: Nov 16, 1984 | RLD: No | RS: No | Type: DISCN